FAERS Safety Report 22605968 (Version 2)
Quarter: 2023Q2

REPORT INFORMATION
  Report Type: Report from Study
  Country: ES (occurrence: ES)
  Receive Date: 20230615
  Receipt Date: 20230627
  Transmission Date: 20230722
  Serious: Yes (Other)
  Sender: FDA-Public Use
  Company Number: ES-TAKEDA-2023TUS024406

PATIENT
  Age: 47 Year
  Sex: Male

DRUGS (8)
  1. TEDUGLUTIDE [Suspect]
     Active Substance: TEDUGLUTIDE
     Indication: Short-bowel syndrome
     Dosage: 2.9 MILLIGRAM, QD
     Route: 042
     Dates: start: 20220614
  2. TEDUGLUTIDE [Suspect]
     Active Substance: TEDUGLUTIDE
     Indication: Short-bowel syndrome
     Dosage: 2.9 MILLIGRAM, QD
     Route: 042
     Dates: start: 20220614
  3. TEDUGLUTIDE [Suspect]
     Active Substance: TEDUGLUTIDE
     Indication: Short-bowel syndrome
     Dosage: 2.9 MILLIGRAM, QD
     Route: 042
     Dates: start: 20220614
  4. TEDUGLUTIDE [Suspect]
     Active Substance: TEDUGLUTIDE
     Indication: Short-bowel syndrome
     Dosage: 2.9 MILLIGRAM, QD
     Route: 042
     Dates: start: 20220614
  5. SUPLIVEN [Concomitant]
     Indication: Functional gastrointestinal disorder
     Dosage: 2 INTERNATIONAL UNIT, 2/WEEK
     Route: 042
     Dates: start: 20210429
  6. ERGOCALCIFEROL\PHYTONADIONE\RETINOL\TOCOPHEROL [Concomitant]
     Active Substance: ERGOCALCIFEROL\PHYTONADIONE\RETINOL\TOCOPHEROL
     Indication: Functional gastrointestinal disorder
     Dosage: 2 INTERNATIONAL UNIT, 2/WEEK
     Route: 042
     Dates: start: 20210429
  7. VITAMINS [Concomitant]
     Active Substance: VITAMINS
     Indication: Functional gastrointestinal disorder
     Dosage: 2 INTERNATIONAL UNIT, 2/WEEK
     Route: 042
     Dates: start: 20210429
  8. CALCITRIOL [Concomitant]
     Active Substance: CALCITRIOL
     Indication: Vitamin D deficiency
     Dosage: 1 MICROGRAM, 1/WEEK
     Route: 042
     Dates: start: 20210429

REACTIONS (3)
  - Coeliac disease [Not Recovered/Not Resolved]
  - Diarrhoea [Recovered/Resolved]
  - Asthenia [Recovered/Resolved]

NARRATIVE: CASE EVENT DATE: 20220707
